FAERS Safety Report 8225985-7 (Version None)
Quarter: 2012Q1

REPORT INFORMATION
  Report Type: 
  Country: None (occurrence: None)
  Receive Date: 20120321
  Receipt Date: 20120314
  Transmission Date: 20120608
  Serious: Yes (Hospitalization)
  Sender: FDA-Public Use
  Company Number: FR-FRI-1000029171

PATIENT
  Sex: Female

DRUGS (7)
  1. LASIX [Concomitant]
  2. SPIRONOLACTONE [Suspect]
     Route: 048
     Dates: end: 20120205
  3. NEBIVOLOL [Suspect]
     Route: 048
     Dates: end: 20120205
  4. CORDARONE [Concomitant]
  5. IPERTEN [Concomitant]
     Route: 048
  6. ATACAND [Suspect]
     Route: 048
     Dates: end: 20120205
  7. RABEPRAZOLE SODIUM [Concomitant]
     Route: 048

REACTIONS (3)
  - RENAL FAILURE [None]
  - HYPERKALAEMIA [None]
  - HYPERTHYROIDISM [None]
